FAERS Safety Report 7074969-3 (Version None)
Quarter: 2010Q4

REPORT INFORMATION
  Report Type: 
  Country: None (occurrence: None)
  Receive Date: 20101029
  Receipt Date: 20100202
  Transmission Date: 20110411
  Serious: No
  Sender: FDA-Public Use
  Company Number: US-WYE-H13409310

PATIENT
  Age: 83 Year
  Sex: Male
  Weight: 88.53 kg

DRUGS (10)
  1. ADVIL PM [Suspect]
     Indication: INSOMNIA
     Dosage: 1 CAPLET X 1
     Route: 048
     Dates: start: 20100201, end: 20100201
  2. OMEPRAZOLE [Concomitant]
  3. GLYBURIDE [Concomitant]
  4. TERAZOSIN HCL [Concomitant]
  5. METOPROLOL [Concomitant]
  6. LISINOPRIL [Concomitant]
  7. JANUVIA [Concomitant]
  8. OXYCONTIN [Concomitant]
  9. METFORMIN [Concomitant]
  10. SIMVASTATIN [Concomitant]

REACTIONS (1)
  - DRUG INEFFECTIVE [None]
